FAERS Safety Report 11155415 (Version 1)
Quarter: 2015Q2

REPORT INFORMATION
  Report Type: Spontaneous
  Country: GB (occurrence: GB)
  Receive Date: 20150602
  Receipt Date: 20150602
  Transmission Date: 20150821
  Serious: Yes (Other)
  Sender: FDA-Public Use
  Company Number: GB-ASTRAZENECA-2015SE52293

PATIENT
  Age: 59 Year
  Sex: Male

DRUGS (1)
  1. OMEPRAZOLE. [Suspect]
     Active Substance: OMEPRAZOLE
     Indication: BARRETT^S OESOPHAGUS
     Route: 048

REACTIONS (4)
  - Haematemesis [Unknown]
  - Off label use [Unknown]
  - Gastric varices [Unknown]
  - Upper gastrointestinal haemorrhage [Unknown]
